FAERS Safety Report 7255501-8 (Version None)
Quarter: 2011Q1

REPORT INFORMATION
  Report Type: 
  Country: None (occurrence: None)
  Receive Date: 20110129
  Receipt Date: 20100306
  Transmission Date: 20110831
  Serious: No
  Sender: FDA-Public Use
  Company Number: US-ABBOTT-10P-163-0630940-00

PATIENT
  Sex: Female
  Weight: 65.83 kg

DRUGS (3)
  1. HUMIRA [Suspect]
     Dosage: DAY 15
  2. HUMIRA [Suspect]
  3. HUMIRA [Suspect]
     Indication: CROHN'S DISEASE
     Dosage: DAY 1
     Dates: start: 20100109

REACTIONS (6)
  - DRUG INEFFECTIVE [None]
  - DIZZINESS [None]
  - ABDOMINAL PAIN [None]
  - ASTHENIA [None]
  - NAUSEA [None]
  - FATIGUE [None]
